FAERS Safety Report 12976981 (Version 4)
Quarter: 2017Q1

REPORT INFORMATION
  Report Type: Report from Study
  Country: NL (occurrence: NL)
  Receive Date: 20161128
  Receipt Date: 20170323
  Transmission Date: 20170428
  Serious: Yes (Hospitalization)
  Sender: FDA-Public Use
  Company Number: NL-AMGEN-NLDSL2016166790

PATIENT
  Age: 77 Year
  Sex: Male

DRUGS (5)
  1. XGEVA [Suspect]
     Active Substance: DENOSUMAB
     Indication: PROPHYLAXIS
     Dosage: 120 MG(1.7 ML), Q4WK
     Route: 058
  2. FENTANYL. [Concomitant]
     Active Substance: FENTANYL
     Dosage: DOSAGE TEXT: 12 X UG
  3. XGEVA [Suspect]
     Active Substance: DENOSUMAB
     Dosage: UNK
     Route: 058
  4. XTANDI [Concomitant]
     Active Substance: ENZALUTAMIDE
     Dosage: 52.4 MG, UNK
  5. XGEVA [Suspect]
     Active Substance: DENOSUMAB
     Dosage: UNK
     Route: 058

REACTIONS (9)
  - Fatigue [Recovered/Resolved]
  - Pyrexia [Recovering/Resolving]
  - Asthenia [Recovered/Resolved]
  - Pain in extremity [Not Recovered/Not Resolved]
  - Fall [Not Recovered/Not Resolved]
  - Pulmonary embolism [Unknown]
  - Purulent discharge [Recovering/Resolving]
  - Haemoglobin decreased [Recovered/Resolved]
  - Malaise [Recovered/Resolved]

NARRATIVE: CASE EVENT DATE: 20161105
